FAERS Safety Report 10085955 (Version 1)
Quarter: 2014Q2

REPORT INFORMATION
  Report Type: Spontaneous
  Country: US (occurrence: US)
  Receive Date: 20140418
  Receipt Date: 20140418
  Transmission Date: 20141212
  Serious: No
  Sender: FDA-Public Use
  Company Number: US-B.I. PHARMACEUTICALS,INC./RIDGEFIELD-2014-BI-15890BP

PATIENT
  Sex: Female
  Weight: 39 kg

DRUGS (8)
  1. COMBIVENT [Suspect]
     Indication: CHRONIC OBSTRUCTIVE PULMONARY DISEASE
     Dosage: DOSE PER APPLICATION: 20 MCG / 100 MCG; DAILY DOSE: 80 MCG/ 400 MCG
     Route: 055
     Dates: start: 2012
  2. COMBIVENT [Suspect]
     Indication: CHRONIC OBSTRUCTIVE PULMONARY DISEASE
     Dosage: DOSE PER APPLICATION: 18 MCG / 103 MCG; DAILY DOSE: 144 MCG/ 824 MCG
     Route: 055
     Dates: start: 2007, end: 2012
  3. TYLENOL NUMBER 3 [Concomitant]
     Indication: PAIN
     Dosage: 4 ANZ
     Route: 048
  4. TYLENOL NUMBER 3 [Concomitant]
     Indication: OSTEOPOROSIS
  5. TYLENOL NUMBER 3 [Concomitant]
     Indication: FIBROMYALGIA
  6. TYLENOL NUMBER 3 [Concomitant]
     Indication: SCOLIOSIS
  7. XANAX [Concomitant]
     Indication: ANXIETY
     Dosage: 6 MG
     Route: 048
  8. ZOFRAN [Concomitant]
     Indication: NAUSEA
     Dosage: 12 MG
     Route: 048

REACTIONS (10)
  - Nausea [Not Recovered/Not Resolved]
  - Abdominal distension [Not Recovered/Not Resolved]
  - Gastrointestinal infection [Not Recovered/Not Resolved]
  - Abnormal loss of weight [Not Recovered/Not Resolved]
  - Nasopharyngitis [Unknown]
  - Aphagia [Not Recovered/Not Resolved]
  - Asthenia [Recovered/Resolved]
  - Ear infection [Not Recovered/Not Resolved]
  - Hand fracture [Not Recovered/Not Resolved]
  - Muscular weakness [Not Recovered/Not Resolved]
